FAERS Safety Report 21401492 (Version 2)
Quarter: 2022Q4

REPORT INFORMATION
  Report Type: Spontaneous
  Country: CN (occurrence: CN)
  Receive Date: 20221003
  Receipt Date: 20221013
  Transmission Date: 20230112
  Serious: Yes (Other)
  Sender: FDA-Public Use
  Company Number: CN-SUN PHARMACEUTICAL INDUSTRIES LTD-2022R1-357257

PATIENT
  Age: 72 Year
  Sex: Female

DRUGS (2)
  1. AMINOLEVULINIC ACID [Suspect]
     Active Substance: AMINOLEVULINIC ACID
     Indication: Actinic keratosis
     Dosage: 10 PERCENT
     Route: 065
  2. AMINOLEVULINIC ACID [Suspect]
     Active Substance: AMINOLEVULINIC ACID
     Indication: Rosacea

REACTIONS (2)
  - Systemic inflammatory response syndrome [Recovering/Resolving]
  - Skin hyperpigmentation [Recovering/Resolving]
